FAERS Safety Report 4316641-6 (Version None)
Quarter: 2004Q1

REPORT INFORMATION
  Report Type: 
  Country: None (occurrence: None)
  Receive Date: 20040311
  Receipt Date: 20040226
  Transmission Date: 20041129
  Serious: Yes (Other)
  Sender: FDA-Public Use
  Company Number: 2004013328

PATIENT
  Age: 76 Year
  Sex: Female

DRUGS (2)
  1. ZYRTEC [Suspect]
     Indication: ILL-DEFINED DISORDER
  2. CARDIOVASCULAR SYSTEM DRUGS [Suspect]
     Indication: HYPERTENSION

REACTIONS (1)
  - ILL-DEFINED DISORDER [None]
